FAERS Safety Report 4784423-7 (Version None)
Quarter: 2005Q3

REPORT INFORMATION
  Report Type: 
  Country: None (occurrence: None)
  Receive Date: 20050928
  Receipt Date: 20050912
  Transmission Date: 20060218
  Serious: Yes (Hospitalization)
  Sender: FDA-Public Use
  Company Number: US_0509121880

PATIENT
  Age: 61 Year
  Sex: Male
  Weight: 110 kg

DRUGS (8)
  1. HUMATROPE [Suspect]
     Indication: GROWTH HORMONE DEFICIENCY
     Dates: start: 20040916, end: 20050801
  2. SYNTHROID [Concomitant]
  3. ANDROGEL [Concomitant]
  4. GLUCOPHAGE [Concomitant]
  5. LIPITOR [Concomitant]
  6. AMARYL (GLIMEPRIDIE) [Concomitant]
  7. ALLOPURINOL [Concomitant]
  8. CALCIUM AND VITAMIN D [Concomitant]

REACTIONS (3)
  - BENIGN PROSTATIC HYPERPLASIA [None]
  - CONDITION AGGRAVATED [None]
  - URINARY TRACT OBSTRUCTION [None]
